FAERS Safety Report 20130899 (Version 3)
Quarter: 2022Q3

REPORT INFORMATION
  Report Type: Report from Study
  Country: ES (occurrence: ES)
  Receive Date: 20211130
  Receipt Date: 20220829
  Transmission Date: 20221026
  Serious: No
  Sender: FDA-Public Use
  Company Number: ES-TAKEDA-2021TUS073551

PATIENT
  Age: 2 Year
  Sex: Male

DRUGS (12)
  1. TEDUGLUTIDE [Suspect]
     Active Substance: TEDUGLUTIDE
     Indication: Short-bowel syndrome
     Dosage: 0.32 MILLIGRAM, QD
     Route: 042
     Dates: start: 20200513, end: 20210717
  2. TEDUGLUTIDE [Suspect]
     Active Substance: TEDUGLUTIDE
     Indication: Short-bowel syndrome
     Dosage: 0.32 MILLIGRAM, QD
     Route: 042
     Dates: start: 20200513, end: 20210717
  3. TEDUGLUTIDE [Suspect]
     Active Substance: TEDUGLUTIDE
     Indication: Short-bowel syndrome
     Dosage: 0.32 MILLIGRAM, QD
     Route: 042
     Dates: start: 20200513, end: 20210717
  4. TEDUGLUTIDE [Suspect]
     Active Substance: TEDUGLUTIDE
     Indication: Short-bowel syndrome
     Dosage: 0.32 MILLIGRAM, QD
     Route: 042
     Dates: start: 20200513, end: 20210717
  5. TEDUGLUTIDE [Suspect]
     Active Substance: TEDUGLUTIDE
     Dosage: 0.32 MILLIGRAM, QD
     Route: 042
     Dates: start: 20210721
  6. TEDUGLUTIDE [Suspect]
     Active Substance: TEDUGLUTIDE
     Dosage: 0.32 MILLIGRAM, QD
     Route: 042
     Dates: start: 20210721
  7. TEDUGLUTIDE [Suspect]
     Active Substance: TEDUGLUTIDE
     Dosage: 0.32 MILLIGRAM, QD
     Route: 042
     Dates: start: 20210721
  8. TEDUGLUTIDE [Suspect]
     Active Substance: TEDUGLUTIDE
     Dosage: 0.32 MILLIGRAM, QD
     Route: 042
     Dates: start: 20210721
  9. VITAMIN K [Concomitant]
     Active Substance: PHYTONADIONE
     Indication: Product used for unknown indication
     Dosage: 5 MILLIGRAM, QD
     Route: 042
     Dates: start: 20190811
  10. LEVOTHYROXINE [Concomitant]
     Active Substance: LEVOTHYROXINE
     Indication: Hormone level abnormal
     Dosage: 31.25 MICROGRAM, QD
     Route: 048
     Dates: start: 20190717
  11. BEMIPARIN SODIUM [Concomitant]
     Active Substance: BEMIPARIN SODIUM
     Indication: Antithrombin III deficiency
     Dosage: 1500 INTERNATIONAL UNIT, QD
     Route: 058
     Dates: start: 20200305
  12. URSODIOL [Concomitant]
     Active Substance: URSODIOL
     Indication: Liver disorder
     Dosage: 30 MILLIGRAM, TID
     Route: 048
     Dates: start: 20190110, end: 20200924

REACTIONS (1)
  - Weight decreased [Recovered/Resolved]

NARRATIVE: CASE EVENT DATE: 20211110
